FAERS Safety Report 8814807 (Version 1)
Quarter: 2012Q4

REPORT INFORMATION
  Report Type: 
  Country: US (occurrence: US)
  Receive Date: 20120928
  Receipt Date: 20120928
  Transmission Date: 20130627
  Serious: Yes (Other)
  Sender: FDA-Public Use
  Company Number: US-PFIZER INC-2012239299

PATIENT
  Age: 50 Year
  Sex: Female
  Weight: 68.03 kg

DRUGS (2)
  1. EFFEXOR XR [Suspect]
     Dosage: UNK
  2. MOTRIN [Concomitant]
     Indication: HEADACHE
     Dosage: 800 mg, 2x/day

REACTIONS (8)
  - Drug dependence [Unknown]
  - Vertigo [Unknown]
  - Anxiety [Unknown]
  - Withdrawal syndrome [Unknown]
  - Headache [Unknown]
  - Dizziness [Unknown]
  - Incorrect dose administered [Unknown]
  - Feeling abnormal [Unknown]
